FAERS Safety Report 10753877 (Version 2)
Quarter: 2015Q1

REPORT INFORMATION
  Report Type: Report from Study
  Country: BR (occurrence: BR)
  Receive Date: 20150202
  Receipt Date: 20150216
  Transmission Date: 20150721
  Serious: Yes (Other)
  Sender: FDA-Public Use
  Company Number: PHHY2009BR40834

PATIENT
  Sex: Male
  Weight: 72 kg

DRUGS (8)
  1. EXELON PATCH [Suspect]
     Active Substance: RIVASTIGMINE
     Indication: VASCULAR DEMENTIA
     Dosage: 1 DF, QD
     Route: 062
  2. EXELON PATCH [Suspect]
     Active Substance: RIVASTIGMINE
     Indication: DEMENTIA ALZHEIMER^S TYPE
  3. NEO FEDIPINA [Concomitant]
     Indication: HYPERTENSION
     Dosage: 3 DF, QD
     Route: 048
  4. HIGROTON [Suspect]
     Active Substance: CHLORTHALIDONE
     Indication: HYPERTENSION
     Dosage: 1 DF, QD
     Route: 048
  5. CHLORTHALIDONE. [Concomitant]
     Active Substance: CHLORTHALIDONE
     Indication: RENAL DISORDER
     Dosage: 1 DF, QD
     Route: 048
  6. TRILEPTAL [Suspect]
     Active Substance: OXCARBAZEPINE
     Indication: TRIGEMINAL NEURALGIA
     Dosage: 4 DF (TABLETS), QD
     Route: 048
  7. ATENOLOL. [Concomitant]
     Active Substance: ATENOLOL
     Indication: HYPERTENSION
     Dosage: 0.5 DF, QD
     Route: 048
  8. AAS [Concomitant]
     Active Substance: ASPIRIN
     Indication: PROPHYLAXIS
     Dosage: 2 DF, QD
     Route: 048

REACTIONS (4)
  - Erythema [Recovered/Resolved]
  - Pruritus [Recovered/Resolved]
  - Product use issue [Unknown]
  - Application site hypersensitivity [Recovered/Resolved]
